FAERS Safety Report 4894349-6 (Version None)
Quarter: 2006Q1

REPORT INFORMATION
  Report Type: 
  Country: None (occurrence: None)
  Receive Date: 20060127
  Receipt Date: 20051122
  Transmission Date: 20060701
  Serious: Yes (Other)
  Sender: FDA-Public Use
  Company Number: PHNU2005DE03836

PATIENT
  Sex: Female

DRUGS (2)
  1. ZOMETA [Suspect]
     Indication: METASTASES TO BONE
     Dosage: 4 MG, QMO
     Dates: start: 20030101
  2. XELODA [Concomitant]
     Dosage: 500 MG, TID
     Route: 048

REACTIONS (7)
  - INFLAMMATION [None]
  - ORAL SURGERY [None]
  - OSTEOMYELITIS [None]
  - PRIMARY SEQUESTRUM [None]
  - PROCEDURAL SITE REACTION [None]
  - SEQUESTRECTOMY [None]
  - TOOTH EXTRACTION [None]
